FAERS Safety Report 7656147-X (Version None)
Quarter: 2011Q3

REPORT INFORMATION
  Report Type: 
  Country: None (occurrence: None)
  Receive Date: 20110804
  Receipt Date: 20110722
  Transmission Date: 20111222
  Serious: Yes (Other)
  Sender: FDA-Public Use
  Company Number: US-CELGENEUS-163-21880-11063643

PATIENT
  Sex: Female
  Weight: 94 kg

DRUGS (1)
  1. REVLIMID [Suspect]
     Indication: MULTIPLE MYELOMA
     Dosage: 5 MILLIGRAM
     Route: 048
     Dates: start: 20110513, end: 20110706

REACTIONS (8)
  - AMNESIA [None]
  - BLEPHAROSPASM [None]
  - THROMBOCYTOPENIA [None]
  - ASTHENIA [None]
  - FATIGUE [None]
  - VISUAL IMPAIRMENT [None]
  - NEUTROPENIA [None]
  - HALLUCINATION, VISUAL [None]
